FAERS Safety Report 16881137 (Version 1)
Quarter: 2019Q4

REPORT INFORMATION
  Report Type: Spontaneous
  Country: FR (occurrence: FR)
  Receive Date: 20191003
  Receipt Date: 20191003
  Transmission Date: 20200122
  Serious: Yes (Hospitalization)
  Sender: FDA-Public Use
  Company Number: FR-MYLANLABS-2019M1091633

PATIENT
  Age: 46 Year
  Sex: Female
  Weight: 50 kg

DRUGS (4)
  1. LIDOCAINE. [Suspect]
     Active Substance: LIDOCAINE
     Indication: INDUCTION OF ANAESTHESIA
     Dosage: 1 DOSAGE FORM, TOTAL
     Route: 042
     Dates: start: 20190425, end: 20190425
  2. REMIFENTANIL [Suspect]
     Active Substance: REMIFENTANIL
     Indication: INDUCTION OF ANAESTHESIA
     Dosage: 1 DOSAGE FORM, TOTAL
     Route: 042
     Dates: start: 20190425, end: 20190425
  3. PROPOFOL. [Suspect]
     Active Substance: PROPOFOL
     Indication: INDUCTION OF ANAESTHESIA
     Dosage: 1 DOSAGE FORM, TOTAL
     Route: 042
     Dates: start: 20190425, end: 20190425
  4. DEXAMETHASONE. [Suspect]
     Active Substance: DEXAMETHASONE
     Indication: PROPHYLAXIS OF NAUSEA AND VOMITING
     Dosage: 1 DOSAGE FORM, TOTAL
     Route: 042
     Dates: start: 20190425, end: 20190425

REACTIONS (2)
  - Stress cardiomyopathy [Recovered/Resolved with Sequelae]
  - Cardiogenic shock [Recovered/Resolved with Sequelae]

NARRATIVE: CASE EVENT DATE: 20190425
